FAERS Safety Report 5196308-5 (Version None)
Quarter: 2006Q4

REPORT INFORMATION
  Report Type: 
  Country: None (occurrence: None)
  Receive Date: 20061222
  Receipt Date: 20061211
  Transmission Date: 20070319
  Serious: Yes (Hospitalization)
  Sender: FDA-Public Use
  Company Number: 2006151519

PATIENT
  Age: 7 Year
  Sex: Male

DRUGS (6)
  1. NIFEDIPINE [Suspect]
     Indication: ESSENTIAL HYPERTENSION
     Dosage: 40 MG (20 MG, BID), ORAL
     Route: 048
     Dates: start: 20060609, end: 20061019
  2. TACROLIMUS (TACROLIMUS) [Concomitant]
  3. ENALAPRIL MALEATE [Concomitant]
  4. SULFAMETHOXAZOLE + TRIMETHOPRIM [Concomitant]
  5. VALACYCLOVIR [Concomitant]
  6. MYCOPHENOLIC ACID (MYOCPHENOLIC ACID) [Concomitant]

REACTIONS (2)
  - HEPATIC STEATOSIS [None]
  - HEPATOCELLULAR DAMAGE [None]
